FAERS Safety Report 6079404-X (Version None)
Quarter: 2009Q1

REPORT INFORMATION
  Report Type: 
  Country: None (occurrence: None)
  Receive Date: 20090216
  Receipt Date: 20090203
  Transmission Date: 20090719
  Serious: Yes (Other)
  Sender: FDA-Public Use
  Company Number: US-ELI_LILLY_AND_COMPANY-US200902000501

PATIENT
  Age: 70 Year
  Sex: Female

DRUGS (4)
  1. EVISTA [Suspect]
     Dosage: UNK, UNKNOWN
     Route: 065
     Dates: start: 20040101
  2. FIORICET [Concomitant]
     Dosage: UNK, UNKNOWN
     Route: 065
  3. ESTROGEN NOS [Concomitant]
     Dosage: UNK, UNKNOWN
     Route: 065
  4. VITAMINS [Concomitant]
     Dosage: UNK, UNKNOWN
     Route: 065

REACTIONS (5)
  - FALL [None]
  - IMMUNE SYSTEM DISORDER [None]
  - LEUKAEMIA [None]
  - LOCALISED INFECTION [None]
  - VULVOVAGINAL MYCOTIC INFECTION [None]
